FAERS Safety Report 9367625 (Version 4)
Quarter: 2014Q1

REPORT INFORMATION
  Report Type: Spontaneous
  Country: US (occurrence: US)
  Receive Date: 20130625
  Receipt Date: 20140117
  Transmission Date: 20141002
  Serious: Yes (Death, Hospitalization)
  Sender: FDA-Public Use
  Company Number: US-B.I. PHARMACEUTICALS,INC./RIDGEFIELD-2013-BI-17756BP

PATIENT
  Sex: Male
  Weight: 54.43 kg

DRUGS (9)
  1. PRADAXA [Suspect]
     Indication: ANTICOAGULANT THERAPY
     Dosage: 300 MG
     Dates: start: 20110527, end: 20110827
  2. OMEPRAZOLE [Concomitant]
     Dates: start: 2010
  3. DILAUDID [Concomitant]
     Dates: start: 2010
  4. CLONIDINE [Concomitant]
     Dates: start: 2010
  5. SERTRALINE [Concomitant]
     Dates: start: 2008
  6. FERROUS SULFATE [Concomitant]
     Dates: start: 2010
  7. GLIMEPIRIDE [Concomitant]
     Dates: start: 2010
  8. GUAIFENESIN [Concomitant]
     Dates: start: 2010
  9. NORPACE [Concomitant]
     Dates: start: 2008

REACTIONS (2)
  - Gastrointestinal haemorrhage [Fatal]
  - Anaemia [Unknown]
